FAERS Safety Report 5800751-8 (Version None)
Quarter: 2008Q3

REPORT INFORMATION
  Report Type: 
  Country: None (occurrence: None)
  Receive Date: 20080703
  Receipt Date: 20080623
  Transmission Date: 20090109
  Serious: Yes (Hospitalization)
  Sender: FDA-Public Use
  Company Number: US-ABBOTT-08P-163-0458812-00

PATIENT
  Sex: Female
  Weight: 63.56 kg

DRUGS (6)
  1. HUMIRA [Suspect]
     Indication: RHEUMATOID ARTHRITIS
     Route: 050
  2. FEXOFENADINE [Concomitant]
     Indication: HYPERSENSITIVITY
     Route: 048
  3. RABEPRAZOLE SODIUM [Concomitant]
     Indication: REFLUX GASTRITIS
     Route: 048
  4. PHENELZINE [Concomitant]
     Indication: PANIC ATTACK
  5. METHOTREXATE [Concomitant]
     Indication: RHEUMATOID ARTHRITIS
     Route: 050
  6. FOLIC ACID [Concomitant]
     Indication: DRUG USE FOR UNKNOWN INDICATION

REACTIONS (5)
  - FOOT DEFORMITY [None]
  - INJECTION SITE INFECTION [None]
  - PROCEDURAL COMPLICATION [None]
  - PSORIASIS [None]
  - SINUSITIS [None]
